FAERS Safety Report 14690554 (Version 1)
Quarter: 2018Q1

REPORT INFORMATION
  Report Type: Report from Study
  Country: None (occurrence: ES)
  Receive Date: 20180328
  Receipt Date: 20180328
  Transmission Date: 20180509
  Serious: Yes (Other)
  Sender: FDA-Public Use
  Company Number: ES-BAUSCH-BL-2018-007492

PATIENT
  Age: 35 Year
  Sex: Female

DRUGS (2)
  1. 5-FLUCYTOSINE [Suspect]
     Active Substance: FLUCYTOSINE
     Indication: CANDIDA ENDOPHTHALMITIS
     Route: 065
  2. LIPOSOMAL AMPHOTERICIN B [Suspect]
     Active Substance: AMPHOTERICIN B
     Indication: CANDIDA ENDOPHTHALMITIS
     Route: 065

REACTIONS (1)
  - Drug ineffective [Unknown]
